FAERS Safety Report 4438755-2 (Version None)
Quarter: 2004Q3

REPORT INFORMATION
  Report Type: 
  Country: None (occurrence: None)
  Receive Date: 20040830
  Receipt Date: 20040818
  Transmission Date: 20050211
  Serious: No
  Sender: FDA-Public Use
  Company Number: 2004UW17514

PATIENT

DRUGS (1)
  1. SEROQUEL [Suspect]
     Dosage: 200 MG PO
     Route: 048

REACTIONS (2)
  - ALCOHOL USE [None]
  - OVERDOSE [None]
